FAERS Safety Report 24346437 (Version 1)
Quarter: 2024Q3

REPORT INFORMATION
  Report Type: Report from Study
  Country: GB (occurrence: GB)
  Receive Date: 20240921
  Receipt Date: 20240921
  Transmission Date: 20241017
  Serious: Yes (Other)
  Sender: TEVA
  Company Number: GB-TEVA-VS-3235246

PATIENT
  Age: 34 Year
  Sex: Female

DRUGS (1)
  1. AJOVY [Suspect]
     Active Substance: FREMANEZUMAB-VFRM
     Indication: Migraine
     Dosage: FORM STRENGTH: 225MG/1.5ML
     Route: 058

REACTIONS (3)
  - Lower respiratory tract infection [Recovered/Resolved with Sequelae]
  - Device defective [Unknown]
  - Product physical issue [Unknown]

NARRATIVE: CASE EVENT DATE: 20240101
